FAERS Safety Report 6387654-8 (Version None)
Quarter: 2009Q4

REPORT INFORMATION
  Report Type: 
  Country: None (occurrence: None)
  Receive Date: 20091005
  Receipt Date: 20090922
  Transmission Date: 20100525
  Serious: Yes (Hospitalization, Other)
  Sender: FDA-Public Use
  Company Number: PHHY2009US40586

PATIENT

DRUGS (2)
  1. CYCLOSPORINE [Suspect]
     Indication: LIVER TRANSPLANT
  2. PREDNISOLONE [Concomitant]
     Indication: LIVER TRANSPLANT

REACTIONS (7)
  - ASCITES [None]
  - NODULAR REGENERATIVE HYPERPLASIA [None]
  - OESOPHAGEAL VARICES HAEMORRHAGE [None]
  - PORTAL VEIN THROMBOSIS [None]
  - SHUNT OCCLUSION [None]
  - SPLENECTOMY [None]
  - SPLENORENAL SHUNT [None]
